FAERS Safety Report 10008019 (Version 2)
Quarter: 2014Q2

REPORT INFORMATION
  Report Type: Spontaneous
  Country: US (occurrence: None)
  Receive Date: 20140228
  Receipt Date: 20140530
  Transmission Date: 20141212
  Serious: No
  Sender: FDA-Public Use
  Company Number: 225750

PATIENT
  Age: 56 Year
  Sex: Female

DRUGS (1)
  1. PICATO [Suspect]
     Indication: ACTINIC KERATOSIS
     Dosage: (ONCE DAILY FOR 3 DAYS), TOPICAL
     Route: 061
     Dates: start: 20140112, end: 20140114

REACTIONS (2)
  - Eyelid ptosis [None]
  - Eye swelling [None]
